FAERS Safety Report 8155645-2 (Version None)
Quarter: 2012Q1

REPORT INFORMATION
  Report Type: 
  Country: None (occurrence: None)
  Receive Date: 20120222
  Receipt Date: 20120215
  Transmission Date: 20120608
  Serious: No
  Sender: FDA-Public Use
  Company Number: US-PFIZER INC-2012041535

PATIENT
  Sex: Female
  Weight: 145.13 kg

DRUGS (2)
  1. SKELAXIN [Suspect]
     Indication: MUSCLE SPASMS
     Dosage: 800 MG, 3X/DAY
     Route: 048
     Dates: start: 20120201, end: 20120204
  2. HYDROCODONE [Concomitant]
     Dosage: UNK

REACTIONS (3)
  - VOMITING [None]
  - NAUSEA [None]
  - SOMNOLENCE [None]
